FAERS Safety Report 23226603 (Version 1)
Quarter: 2023Q4

REPORT INFORMATION
  Report Type: Report from Study
  Country: US (occurrence: US)
  Receive Date: 20231124
  Receipt Date: 20231124
  Transmission Date: 20240109
  Serious: Yes (Hospitalization)
  Sender: FDA-Public Use
  Company Number: US-JAZZ PHARMACEUTICALS-2023-US-021444

PATIENT
  Sex: Male

DRUGS (4)
  1. EPIDIOLEX [Suspect]
     Active Substance: CANNABIDIOL
     Indication: Epilepsy
     Dosage: 200 MILLIGRAM, BID
     Route: 048
     Dates: start: 202308
  2. EPIDIOLEX [Suspect]
     Active Substance: CANNABIDIOL
     Indication: Lennox-Gastaut syndrome
     Dosage: 2.5 MILLILITER, BID
     Route: 048
     Dates: start: 202308
  3. EPIDIOLEX [Suspect]
     Active Substance: CANNABIDIOL
     Indication: Epilepsy
  4. PULMOZYME [Concomitant]
     Active Substance: DORNASE ALFA
     Indication: Product used for unknown indication
     Dosage: UNK
     Dates: start: 201907

REACTIONS (3)
  - Hospitalisation [Unknown]
  - Emergency care [Unknown]
  - Off label use [Unknown]
